FAERS Safety Report 8796261 (Version 3)
Quarter: 2012Q4

REPORT INFORMATION
  Report Type: 
  Country: US (occurrence: US)
  Receive Date: 20120919
  Receipt Date: 20121130
  Transmission Date: 20130627
  Serious: Yes (Death, Other)
  Sender: FDA-Public Use
  Company Number: US-PFIZER INC-2012227864

PATIENT
  Age: 66 Year
  Sex: Male
  Weight: 77.1 kg

DRUGS (3)
  1. VIAGRA [Suspect]
     Indication: ERECTILE DYSFUNCTION
     Dosage: 100 mg, as needed
     Route: 048
     Dates: start: 201203, end: 2012
  2. CASODEX [Concomitant]
     Indication: PROSTATIC DISORDER
     Dosage: 50 mg, daily
  3. TAMSULOSIN [Concomitant]
     Indication: PROSTATIC DISORDER
     Dosage: 8 mg, daily

REACTIONS (2)
  - Laryngeal cancer [Fatal]
  - Pharyngeal disorder [Unknown]
